FAERS Safety Report 15764821 (Version 1)
Quarter: 2018Q4

REPORT INFORMATION
  Report Type: Spontaneous
  Country: US (occurrence: US)
  Receive Date: 20181207
  Receipt Date: 20181207
  Transmission Date: 20190205
  Serious: Yes (Death)
  Sender: FDA-Public Use
  Company Number: None

PATIENT
  Age: 70 Year
  Sex: Male
  Weight: 121.38 kg

DRUGS (1)
  1. NANOLIPOSOMAL IRINOTECAN [Suspect]
     Active Substance: IRINOTECAN
     Indication: GLIOBLASTOMA
     Dosage: ?          OTHER DOSE:124.7MG;OTHER FREQUENCY:EVERY 2 WEEKS;?
     Route: 042
     Dates: start: 20180710, end: 20180724

REACTIONS (4)
  - Aspiration [None]
  - Pneumonia [None]
  - Pulmonary embolism [None]
  - Sudden death [None]

NARRATIVE: CASE EVENT DATE: 20181012
